FAERS Safety Report 4395138-1 (Version None)
Quarter: 2004Q3

REPORT INFORMATION
  Report Type: 
  Country: None (occurrence: None)
  Receive Date: 20040706
  Receipt Date: 20040628
  Transmission Date: 20050211
  Serious: Yes (Life-Threatening)
  Sender: FDA-Public Use
  Company Number: 2004221018NO

PATIENT
  Age: 49 Year
  Sex: Female

DRUGS (3)
  1. FRAGMIN [Suspect]
     Indication: ANTICOAGULANT THERAPY
     Dosage: 1000 U, BID, SUBCUTANEOUS
     Route: 058
     Dates: start: 20040605, end: 20040607
  2. ACTIVASE [Suspect]
     Indication: THROMBOSIS
     Dosage: 92 MG/HR, IV
     Route: 042
     Dates: start: 20040602, end: 20040605
  3. WARFARIN SODIUM [Concomitant]

REACTIONS (2)
  - CEREBRAL HAEMORRHAGE [None]
  - HEMIPARESIS [None]
